FAERS Safety Report 4887531-5 (Version None)
Quarter: 2006Q1

REPORT INFORMATION
  Report Type: 
  Country: None (occurrence: None)
  Receive Date: 20060118
  Receipt Date: 20060110
  Transmission Date: 20060701
  Serious: Yes (Hospitalization)
  Sender: FDA-Public Use
  Company Number: 207572

PATIENT
  Age: 41 Year
  Sex: Female
  Weight: 57 kg

DRUGS (2)
  1. AVONEX [Suspect]
     Indication: MULTIPLE SCLEROSIS
     Dosage: 30 UG; QW; IM
     Route: 030
     Dates: start: 19990101
  2. CLINDAMYCIN HCL [Concomitant]

REACTIONS (3)
  - ABSCESS INTESTINAL [None]
  - COLITIS ULCERATIVE [None]
  - PROCTOCOLITIS [None]
